FAERS Safety Report 8829263 (Version 1)
Quarter: 2012Q4

REPORT INFORMATION
  Report Type: 
  Country: CA (occurrence: CA)
  Receive Date: 20121008
  Receipt Date: 20121008
  Transmission Date: 20130627
  Serious: Yes (Death, Other)
  Sender: FDA-Public Use
  Company Number: PHMT2007CA01630

PATIENT
  Sex: Male
  Weight: 68.48 kg

DRUGS (1)
  1. SANDOSTATIN LAR [Suspect]
     Indication: HEPATIC NEOPLASM MALIGNANT
     Dosage: 30 mg, QMO
     Route: 030
     Dates: start: 20070528

REACTIONS (11)
  - Death [Fatal]
  - Bone cancer [Unknown]
  - Back pain [Recovering/Resolving]
  - Weight decreased [Unknown]
  - Musculoskeletal pain [Recovering/Resolving]
  - Blood pressure increased [Unknown]
  - Decreased appetite [Unknown]
  - Nausea [Unknown]
  - Vomiting [Unknown]
  - Fatigue [Unknown]
  - Injection site pain [Unknown]
